FAERS Safety Report 12157480 (Version 4)
Quarter: 2016Q2

REPORT INFORMATION
  Report Type: Report from Study
  Country: US (occurrence: US)
  Receive Date: 20160308
  Receipt Date: 20160407
  Transmission Date: 20160815
  Serious: Yes (Other)
  Sender: FDA-Public Use
  Company Number: US-AMGEN-USASL2016026899

PATIENT
  Age: 69 Year
  Sex: Female

DRUGS (2)
  1. ENBREL [Suspect]
     Active Substance: ETANERCEPT
     Dosage: UNK UNK, Q2WK
     Route: 065
  2. ENBREL [Suspect]
     Active Substance: ETANERCEPT
     Indication: RHEUMATOID ARTHRITIS
     Dosage: 50 MG, QWK
     Route: 065
     Dates: start: 201602

REACTIONS (17)
  - Gait disturbance [Unknown]
  - Dysstasia [Unknown]
  - Eye disorder [Unknown]
  - Pain [Unknown]
  - Paraesthesia [Unknown]
  - Ear disorder [Unknown]
  - Underdose [Unknown]
  - Peripheral swelling [Unknown]
  - Nodule [Unknown]
  - Wrong technique in product usage process [Unknown]
  - Joint swelling [Unknown]
  - Deafness [Unknown]
  - Pain in extremity [Unknown]
  - Nasopharyngitis [Unknown]
  - Inappropriate schedule of drug administration [Unknown]
  - Musculoskeletal pain [Unknown]
  - Hypoaesthesia [Unknown]

NARRATIVE: CASE EVENT DATE: 2016
